FAERS Safety Report 8152078-X (Version None)
Quarter: 2012Q1

REPORT INFORMATION
  Report Type: 
  Country: None (occurrence: None)
  Receive Date: 20120221
  Receipt Date: 20120216
  Transmission Date: 20120608
  Serious: Yes (Other)
  Sender: FDA-Public Use
  Company Number: BR-PFIZER INC-2011293006

PATIENT
  Age: 61 Year
  Sex: Male
  Weight: 83.4 kg

DRUGS (1)
  1. VARENICLINE TARTRATE [Suspect]
     Indication: SMOKING CESSATION THERAPY
     Dosage: 0.5 MG, 1X/DAY
     Route: 048
     Dates: start: 20111118

REACTIONS (7)
  - NAUSEA [None]
  - NERVE INJURY [None]
  - WEIGHT INCREASED [None]
  - INCREASED APPETITE [None]
  - SOMNOLENCE [None]
  - INSOMNIA [None]
  - EAR DISCOMFORT [None]
